FAERS Safety Report 7782773-3 (Version None)
Quarter: 2011Q3

REPORT INFORMATION
  Report Type: 
  Country: None (occurrence: None)
  Receive Date: 20110927
  Receipt Date: 20110927
  Transmission Date: 20111222
  Serious: No
  Sender: FDA-Public Use
  Company Number: None

PATIENT
  Sex: Male
  Weight: 39.3 kg

DRUGS (3)
  1. ONCASPAR [Suspect]
     Dosage: 6350 MG
     Dates: end: 20110218
  2. VINCRISTINE SULFATE [Suspect]
     Dosage: 7.7 MG
     Dates: end: 20110228
  3. METHOTREXATE [Suspect]
     Dosage: 717 MG
     Dates: end: 20110228

REACTIONS (2)
  - BLOOD GLUCOSE INCREASED [None]
  - BLOOD BILIRUBIN INCREASED [None]
